FAERS Safety Report 23912317 (Version 1)
Quarter: 2024Q2

REPORT INFORMATION
  Report Type: Spontaneous
  Country: US (occurrence: US)
  Receive Date: 20240528
  Receipt Date: 20240528
  Transmission Date: 20240717
  Serious: No
  Sender: FDA-Public Use
  Company Number: US-Dermavant-001093

PATIENT
  Sex: Female

DRUGS (1)
  1. TAPINAROF [Suspect]
     Active Substance: TAPINAROF

REACTIONS (4)
  - Hypersensitivity [Unknown]
  - Rash [Unknown]
  - Erythema [Unknown]
  - Pruritus [Unknown]
